FAERS Safety Report 14781277 (Version 1)
Quarter: 2018Q2

REPORT INFORMATION
  Report Type: Spontaneous
  Country: HR (occurrence: HR)
  Receive Date: 20180419
  Receipt Date: 20180419
  Transmission Date: 20180711
  Serious: Yes (Death)
  Sender: FDA-Public Use
  Company Number: HR-BIOMARINAP-HR-2018-117910

PATIENT
  Age: 19 Year
  Sex: Male

DRUGS (1)
  1. ALDURAZYME [Suspect]
     Active Substance: LARONIDASE
     Indication: MUCOPOLYSACCHARIDOSIS I
     Dosage: UNK
     Route: 041
     Dates: start: 2003, end: 201804

REACTIONS (3)
  - Renal failure [Fatal]
  - Cardiac failure [Fatal]
  - Sepsis [Fatal]

NARRATIVE: CASE EVENT DATE: 201804
